FAERS Safety Report 7546996 (Version 3)
Quarter: 2012Q4

REPORT INFORMATION
  Report Type: 
  Country: BE (occurrence: BE)
  Receive Date: 20100819
  Receipt Date: 20120831
  Transmission Date: 20130627
  Serious: Yes (Hospitalization)
  Sender: FDA-Public Use
  Company Number: BE-MILLENNIUM PHARMACEUTICALS, INC.-2010-04309

PATIENT

DRUGS (16)
  1. VELCADE [Suspect]
     Indication: MULTIPLE MYELOMA
     Dosage: UNK
     Route: 042
     Dates: start: 20100702, end: 20100723
  2. MELPHALAN [Suspect]
     Indication: MULTIPLE MYELOMA
     Dosage: UNK
     Route: 048
     Dates: start: 20100702, end: 20100723
  3. PREDNISONE [Suspect]
     Indication: MULTIPLE MYELOMA
     Dosage: UNK
     Route: 048
     Dates: start: 20100702, end: 20100723
  4. REVLIMID [Suspect]
     Indication: MULTIPLE MYELOMA
     Dosage: 10 mg, UNK
     Route: 048
     Dates: start: 20100308, end: 20100628
  5. REVLIMID [Suspect]
     Dosage: 10 mg, UNK
     Route: 048
     Dates: start: 20100504, end: 20100531
  6. DEXAMETHASONE [Suspect]
     Indication: MULTIPLE MYELOMA
     Dosage: 80 mg, UNK
     Route: 048
     Dates: start: 20100308, end: 20100628
  7. DEXAMETHASONE [Suspect]
     Dosage: 80 mg, UNK
     Route: 048
     Dates: start: 20100504, end: 20100531
  8. ASPIRIN [Concomitant]
     Indication: THROMBOSIS PROPHYLAXIS
  9. BISOPROLOL [Concomitant]
     Indication: CORONARY ARTERY BYPASS
     Dosage: 10 mg, UNK
     Route: 048
     Dates: start: 199708
  10. ALDACTAZINE [Concomitant]
     Indication: CORONARY ARTERY BYPASS
     Dosage: 0.5 DF, UNK
     Route: 048
     Dates: start: 199708
  11. LORAZEPAM [Concomitant]
     Indication: SLEEP DISORDER
     Dosage: 1 mg, UNK
     Route: 048
     Dates: start: 2005
  12. SODIUM PICOSULFATE [Concomitant]
     Indication: CONSTIPATION
     Dosage: UNK, prn
     Route: 048
     Dates: start: 20090825, end: 20100723
  13. DOMPERIDON                         /00498202/ [Concomitant]
     Indication: PROPHYLAXIS OF NAUSEA AND VOMITING
     Dosage: UNK UNK, prn
     Route: 048
     Dates: start: 20090825, end: 20100723
  14. IBUPROFEN [Concomitant]
     Indication: MYALGIA
     Dosage: UNK, prn
     Route: 048
     Dates: start: 20091021, end: 20100723
  15. ASAFLOW [Concomitant]
     Indication: THROMBOSIS PROPHYLAXIS
     Dosage: 80 mg, UNK
     Route: 048
     Dates: start: 20100309
  16. SIMVASTATIN [Concomitant]
     Indication: HYPERLIPIDAEMIA
     Dosage: 10 mg, UNK
     Route: 048
     Dates: start: 2004

REACTIONS (5)
  - General physical health deterioration [Recovered/Resolved]
  - Pyrexia [Recovered/Resolved]
  - Dyspnoea exertional [Recovered/Resolved]
  - Diarrhoea [Recovered/Resolved]
  - Decreased appetite [Recovered/Resolved]
